FAERS Safety Report 19116187 (Version 1)
Quarter: 2021Q2

REPORT INFORMATION
  Report Type: Spontaneous
  Country: GB (occurrence: GB)
  Receive Date: 20210409
  Receipt Date: 20210409
  Transmission Date: 20210717
  Serious: Yes (Disabling, Other)
  Sender: FDA-Public Use
  Company Number: GB-ELI_LILLY_AND_COMPANY-GB202104000751

PATIENT
  Age: 49 Year
  Sex: Female
  Weight: 88.9 kg

DRUGS (1)
  1. DULOXETINE HYDROCHLORIDE. [Suspect]
     Active Substance: DULOXETINE HYDROCHLORIDE
     Indication: PAIN
     Dosage: 100 MG, UNKNOWN
     Route: 048
     Dates: start: 20210307, end: 20210316

REACTIONS (7)
  - Mydriasis [Recovering/Resolving]
  - Asthma [Unknown]
  - Serum serotonin increased [Unknown]
  - Decreased appetite [Unknown]
  - Headache [Unknown]
  - Tremor [Unknown]
  - Pain [Unknown]

NARRATIVE: CASE EVENT DATE: 20210319
